FAERS Safety Report 15465354 (Version 1)
Quarter: 2018Q4

REPORT INFORMATION
  Report Type: Spontaneous
  Country: US (occurrence: DE)
  Receive Date: 20181004
  Receipt Date: 20181004
  Transmission Date: 20190204
  Serious: Yes (Congenital Anomaly, Other)
  Sender: FDA-Public Use
  Company Number: DE-TEVA-2018-DE-960971

PATIENT
  Age: 12 Week
  Sex: Male
  Weight: 2.8 kg

DRUGS (12)
  1. LAMIVUDINE AND ZIDOVUDINE [Suspect]
     Active Substance: LAMIVUDINE\ZIDOVUDINE
     Indication: MATERNAL EXPOSURE TIMING UNSPECIFIED
     Route: 064
  2. LAMIVUDINE. [Suspect]
     Active Substance: LAMIVUDINE
     Indication: MATERNAL EXPOSURE TIMING UNSPECIFIED
     Route: 064
  3. INVIRASE [Suspect]
     Active Substance: SAQUINAVIR MESYLATE
     Indication: ANTIVIRAL TREATMENT
     Dosage: EXPOSURE DATES: PRIOR TO CONCEPTION TO 30 WEEKS.
     Route: 064
     Dates: end: 20050218
  4. EPIVIR [Suspect]
     Active Substance: LAMIVUDINE
     Route: 065
  5. 3TC [Suspect]
     Active Substance: LAMIVUDINE
     Indication: ANTIVIRAL TREATMENT
     Dosage: EXPOSURE DATES: PRIOR TO CONCEPTION TO 30 WEEKS.
     Route: 064
     Dates: start: 20040729, end: 20050216
  6. RITONAVIR. [Suspect]
     Active Substance: RITONAVIR
     Indication: ANTIVIRAL TREATMENT
     Dosage: EXPOSURE DATES: PRIOR TO CONCEPTION TO 30 WEEKS.
     Route: 064
     Dates: start: 20040729, end: 20050216
  7. TENOFOVIR DISOPROXIL FUMARATE. [Suspect]
     Active Substance: TENOFOVIR DISOPROXIL FUMARATE
     Indication: ANTIVIRAL TREATMENT
     Dosage: EXPOSURE DATES: PRIOR TO CONCEPTION TO DELIVERY.
     Route: 064
     Dates: start: 20040729
  8. COMBIVIR [Suspect]
     Active Substance: LAMIVUDINE\ZIDOVUDINE
     Route: 065
  9. NORVIR [Suspect]
     Active Substance: RITONAVIR
     Indication: MATERNAL EXPOSURE TIMING UNSPECIFIED
     Dosage: 400MG PER DAY
     Route: 064
  10. VIREAD [Suspect]
     Active Substance: TENOFOVIR DISOPROXIL FUMARATE
     Route: 064
  11. FUZEON [Suspect]
     Active Substance: ENFUVIRTIDE
     Indication: ANTIVIRAL TREATMENT
     Dosage: EXPOSURE DATES: 35 WEEKS TO DELIVERY.
     Route: 064
     Dates: start: 20050322, end: 20050331
  12. ZDV + DDC VS ZDV + 3TC VS ZDV + 3TC [Suspect]
     Active Substance: LAMIVUDINE\ZALCITABINE\ZIDOVUDINE
     Indication: ANTIVIRAL TREATMENT
     Dosage: EXPOSURE DATES: 30 WEEKS TO DELIVERY.
     Route: 064
     Dates: start: 20050216

REACTIONS (1)
  - Diaphragmatic hernia [Unknown]
